FAERS Safety Report 4342635-0 (Version None)
Quarter: 2004Q2

REPORT INFORMATION
  Report Type: 
  Country: None (occurrence: None)
  Receive Date: 20040421
  Receipt Date: 20040412
  Transmission Date: 20050107
  Serious: Yes (Death)
  Sender: FDA-Public Use
  Company Number: JP-JNJFOC-20040402658

PATIENT
  Sex: Male

DRUGS (15)
  1. DUROTEP [Suspect]
     Indication: CANCER PAIN
     Route: 062
     Dates: start: 20030901, end: 20040310
  2. BERAPROST SODIUM [Concomitant]
     Route: 049
     Dates: start: 20030814, end: 20040310
  3. AGENTS FOR PEPTIC ULCER [Concomitant]
     Route: 049
     Dates: start: 20030814, end: 20040310
  4. REBAMIPIDE [Concomitant]
     Indication: GASTRIC ULCER
     Route: 049
     Dates: start: 20030814, end: 20040310
  5. MECOBALAMIN [Concomitant]
     Route: 049
     Dates: start: 20030814, end: 20040310
  6. LAFUTIDINE [Concomitant]
     Indication: GASTRIC ULCER
     Route: 049
     Dates: start: 20030814, end: 20040310
  7. CERNITIN [Concomitant]
  8. CERNITIN [Concomitant]
     Indication: PROSTATITIS
  9. AMLODIPINE BESYLATE [Concomitant]
     Indication: HYPERTENSION
     Route: 049
  10. GLIBENCLAMINE [Concomitant]
     Indication: DIABETES MELLITUS
     Route: 049
  11. KETOPROFEN [Concomitant]
  12. DOMPERIDONE [Concomitant]
     Route: 049
  13. MORPHINE SULFATE [Concomitant]
     Indication: CANCER PAIN
     Route: 049
  14. NOGITECAN HYDROCHLORIDE [Concomitant]
  15. FLUTAMIDE [Concomitant]

REACTIONS (6)
  - ALANINE AMINOTRANSFERASE INCREASED [None]
  - ASPARTATE AMINOTRANSFERASE INCREASED [None]
  - BLOOD ALKALINE PHOSPHATASE INCREASED [None]
  - LUNG NEOPLASM MALIGNANT [None]
  - MALIGNANT NEOPLASM PROGRESSION [None]
  - PROSTATE CANCER [None]
